FAERS Safety Report 16999353 (Version 1)
Quarter: 2019Q4

REPORT INFORMATION
  Report Type: Spontaneous
  Country: US (occurrence: US)
  Receive Date: 20191105
  Receipt Date: 20191105
  Transmission Date: 20200122
  Serious: Yes (Hospitalization, Disabling)
  Sender: FDA-Public Use
  Company Number: None

PATIENT
  Age: 54 Year
  Sex: Female
  Weight: 83.7 kg

DRUGS (6)
  1. CIPRO [Suspect]
     Active Substance: CIPROFLOXACIN HYDROCHLORIDE
     Indication: EAR INFECTION
     Route: 048
     Dates: start: 20160315, end: 20160408
  2. PROPANOL ER [Concomitant]
  3. METPHORIM [Concomitant]
  4. LOSARTEN HCTZ [Concomitant]
  5. AMALODIPINE BESATE [Concomitant]
  6. CYCLOBENCILINE [Concomitant]

REACTIONS (6)
  - Fall [None]
  - Sepsis [None]
  - Feeling abnormal [None]
  - Dizziness [None]
  - Hot flush [None]
  - Cerebrovascular accident [None]

NARRATIVE: CASE EVENT DATE: 20160408
